FAERS Safety Report 4284921-9 (Version None)
Quarter: 2004Q1

REPORT INFORMATION
  Report Type: 
  Country: None (occurrence: None)
  Receive Date: 20040121
  Receipt Date: 20030127
  Transmission Date: 20041129
  Serious: Yes (Hospitalization)
  Sender: FDA-Public Use
  Company Number: A03200300167

PATIENT
  Age: 81 Year
  Sex: Female
  Weight: 64.8644 kg

DRUGS (4)
  1. PLAVIX [Suspect]
     Indication: PROPHYLAXIS
     Dosage: 75 MG QD - ORAL
     Route: 048
     Dates: start: 20030101, end: 20030126
  2. ATORVASTATIN [Concomitant]
  3. METOPROLOL SUCCINATE [Concomitant]
  4. ASPIRIN [Concomitant]

REACTIONS (2)
  - HYPERSENSITIVITY [None]
  - RENAL FAILURE [None]
